FAERS Safety Report 5636217-8 (Version None)
Quarter: 2008Q1

REPORT INFORMATION
  Report Type: 
  Country: None (occurrence: None)
  Receive Date: 20080220
  Receipt Date: 20080220
  Transmission Date: 20080703
  Serious: Yes (Hospitalization)
  Sender: FDA-Public Use
  Company Number: None

PATIENT
  Sex: Female
  Weight: 64.09 kg

DRUGS (2)
  1. CISPLATIN [Suspect]
     Dosage: 83 MG
  2. NAVELBINE [Suspect]
     Dosage: 66 MG

REACTIONS (5)
  - CHILLS [None]
  - CULTURE URINE POSITIVE [None]
  - ESCHERICHIA INFECTION [None]
  - PHARYNGOLARYNGEAL PAIN [None]
  - PYREXIA [None]
